FAERS Safety Report 22717728 (Version 2)
Quarter: 2023Q4

REPORT INFORMATION
  Report Type: Spontaneous
  Country: BR (occurrence: BR)
  Receive Date: 20230718
  Receipt Date: 20231115
  Transmission Date: 20240109
  Serious: Yes (Other)
  Sender: FDA-Public Use
  Company Number: BR-002147023-NVSC2023BR158052

PATIENT

DRUGS (1)
  1. COSENTYX [Suspect]
     Active Substance: SECUKINUMAB
     Indication: Spondylitis
     Dosage: UNK (FOR APPROXIMATELY 3 YEARS)
     Route: 065

REACTIONS (2)
  - Lipodystrophy acquired [Unknown]
  - Product use in unapproved indication [Unknown]
